FAERS Safety Report 4575945-2 (Version None)
Quarter: 2005Q1

REPORT INFORMATION
  Report Type: 
  Country: None (occurrence: None)
  Receive Date: 20050209
  Receipt Date: 20050202
  Transmission Date: 20050727
  Serious: Yes (Death, Other)
  Sender: FDA-Public Use
  Company Number: JP-JNJFOC-20040403614

PATIENT
  Sex: Male

DRUGS (4)
  1. DUROTEP [Suspect]
     Route: 062
  2. DUROTEP [Suspect]
     Route: 062
  3. DUROTEP [Suspect]
     Indication: CANCER PAIN
     Route: 062
  4. MORPHINE SULFATE [Concomitant]
     Indication: DRUG USE FOR UNKNOWN INDICATION

REACTIONS (5)
  - DRUG EFFECT DECREASED [None]
  - ILEUS [None]
  - INTESTINAL OBSTRUCTION [None]
  - SEPSIS [None]
  - SOMNOLENCE [None]
